FAERS Safety Report 7938318-8 (Version None)
Quarter: 2011Q4

REPORT INFORMATION
  Report Type: 
  Country: None (occurrence: None)
  Receive Date: 20111123
  Receipt Date: 20111121
  Transmission Date: 20120403
  Serious: Yes (Death, Hospitalization, Other)
  Sender: FDA-Public Use
  Company Number: BR-ABBOTT-11P-020-0857041-00

PATIENT
  Sex: Male

DRUGS (2)
  1. HUMIRA [Suspect]
     Indication: RHEUMATOID ARTHRITIS
  2. HUMIRA [Suspect]
     Indication: ANKYLOSING SPONDYLITIS
     Dates: start: 20110801

REACTIONS (6)
  - SEPSIS [None]
  - IMMUNODEFICIENCY [None]
  - LUNG INFECTION [None]
  - OSTEOMYELITIS [None]
  - CHOLELITHIASIS [None]
  - INFECTION [None]
